FAERS Safety Report 7487172-X (Version None)
Quarter: 2011Q1

REPORT INFORMATION
  Report Type: 
  Country: None (occurrence: None)
  Receive Date: 20110309
  Receipt Date: 20101216
  Transmission Date: 20110831
  Serious: No
  Sender: FDA-Public Use
  Company Number: 2010SP065086

PATIENT
  Age: 56 Year
  Sex: Female

DRUGS (4)
  1. WELLBUTRIN [Concomitant]
  2. PROVIGIL [Concomitant]
  3. SAPHRIS [Suspect]
     Indication: BIPOLAR DISORDER
     Dosage: SL
     Route: 060
     Dates: start: 20101201
  4. SAPHRIS [Suspect]
     Indication: MANIA
     Dosage: SL
     Route: 060
     Dates: start: 20101201

REACTIONS (5)
  - GASTROOESOPHAGEAL REFLUX DISEASE [None]
  - DECREASED APPETITE [None]
  - NAUSEA [None]
  - DYSPEPSIA [None]
  - WEIGHT INCREASED [None]
